FAERS Safety Report 7671141-0 (Version None)
Quarter: 2011Q3

REPORT INFORMATION
  Report Type: 
  Country: None (occurrence: None)
  Receive Date: 20110808
  Receipt Date: 20110808
  Transmission Date: 20111222
  Serious: Yes (Other)
  Sender: FDA-Public Use
  Company Number: None

PATIENT
  Sex: Female
  Weight: 54.5 kg

DRUGS (2)
  1. ORTHO EVRA [Concomitant]
  2. FLURESS (FLUORESCEIN AND BENOXINATE) [Suspect]
     Indication: OPHTHALMOLOGICAL EXAMINATION
     Dosage: OPTHALMIC
     Route: 047
     Dates: start: 20110804

REACTIONS (4)
  - HEADACHE [None]
  - TOXICITY TO VARIOUS AGENTS [None]
  - NAUSEA [None]
  - FALL [None]
